FAERS Safety Report 4728158-5 (Version None)
Quarter: 2005Q3

REPORT INFORMATION
  Report Type: 
  Country: None (occurrence: None)
  Receive Date: 20050728
  Receipt Date: 20050728
  Transmission Date: 20060218
  Serious: Yes (Disabling)
  Sender: FDA-Public Use
  Company Number: None

PATIENT
  Age: 90 Year
  Sex: Female
  Weight: 53.5244 kg

DRUGS (2)
  1. OXYCONTIN [Suspect]
     Indication: OSTEOPOROSIS
     Dosage: 40 MG PO BID
     Route: 048
     Dates: start: 20050711, end: 20050720
  2. OXYCONTIN [Suspect]
     Indication: PAIN
     Dosage: 40 MG PO BID
     Route: 048
     Dates: start: 20050711, end: 20050720

REACTIONS (2)
  - DRUG EFFECT DECREASED [None]
  - PAIN [None]
